FAERS Safety Report 4691039-X (Version None)
Quarter: 2005Q2

REPORT INFORMATION
  Report Type: 
  Country: None (occurrence: None)
  Receive Date: 20050615
  Receipt Date: 20050609
  Transmission Date: 20051028
  Serious: Yes (Life-Threatening)
  Sender: FDA-Public Use
  Company Number: 2005AC00845

PATIENT
  Age: 42 Year
  Sex: Male
  Weight: 60 kg

DRUGS (3)
  1. BUPIVACAINE HYPERBARIC [Suspect]
     Indication: SPINAL ANAESTHESIA
  2. LIDOCAINE [Suspect]
     Route: 058
  3. BISOPROLOL FUMARATE [Concomitant]
     Indication: HYPERTENSION

REACTIONS (4)
  - ANAESTHETIC COMPLICATION [None]
  - BRADYCARDIA [None]
  - LARYNGOSPASM [None]
  - STRIDOR [None]
